FAERS Safety Report 7262734-3 (Version None)
Quarter: 2011Q1

REPORT INFORMATION
  Report Type: 
  Country: None (occurrence: None)
  Receive Date: 20110130
  Receipt Date: 20100926
  Transmission Date: 20110831
  Serious: No
  Sender: FDA-Public Use
  Company Number: US-ABBOTT-10P-163-0673884-00

PATIENT
  Age: 63 Year
  Sex: Male

DRUGS (7)
  1. FLOMAX [Concomitant]
     Indication: PRODUCT USED FOR UNKNOWN INDICATION
  2. ASA [Concomitant]
     Indication: PRODUCT USED FOR UNKNOWN INDICATION
     Dosage: LOW DOSE/DAILY
  3. HUMIRA [Suspect]
     Indication: PSORIASIS
     Dates: start: 20100801
  4. SINGULAIR [Concomitant]
     Indication: RESPIRATORY DISORDER
  5. SYNTHROID [Concomitant]
     Indication: PRODUCT USED FOR UNKNOWN INDICATION
  6. MULTIVITAMIN [Concomitant]
     Indication: PRODUCT USED FOR UNKNOWN INDICATION
  7. LIPITOR [Concomitant]
     Indication: PRODUCT USED FOR UNKNOWN INDICATION

REACTIONS (4)
  - DYSPNOEA [None]
  - DIZZINESS [None]
  - INJECTION SITE PAIN [None]
  - ASTHENIA [None]
